FAERS Safety Report 12795255 (Version 2)
Quarter: 2016Q4

REPORT INFORMATION
  Report Type: Spontaneous
  Country: US (occurrence: US)
  Receive Date: 20160929
  Receipt Date: 20161003
  Transmission Date: 20170207
  Serious: No
  Sender: FDA-Public Use
  Company Number: US-PFIZER INC-2016450841

PATIENT
  Age: 69 Year
  Sex: Male
  Weight: 93 kg

DRUGS (2)
  1. GABAPENTIN. [Suspect]
     Active Substance: GABAPENTIN
     Indication: DIABETIC NEUROPATHY
     Dosage: 100 MG, 2X/DAY
  2. GABAPENTIN. [Suspect]
     Active Substance: GABAPENTIN
     Indication: NEUROPATHY PERIPHERAL
     Dosage: 300 MG, 2X/DAY

REACTIONS (5)
  - Nausea [Unknown]
  - Neuropathy peripheral [Unknown]
  - Condition aggravated [Unknown]
  - Drug ineffective for unapproved indication [Unknown]
  - Drug hypersensitivity [Unknown]
